FAERS Safety Report 10221083 (Version 1)
Quarter: 2014Q2

REPORT INFORMATION
  Report Type: Spontaneous
  Country: US (occurrence: None)
  Receive Date: 20140605
  Receipt Date: 20140605
  Transmission Date: 20141212
  Serious: Yes (Hospitalization)
  Sender: FDA-Public Use
  Company Number: None

PATIENT
  Age: 69 Year
  Sex: Female
  Weight: 39 kg

DRUGS (1)
  1. CIPROFLOXACIN [Suspect]
     Indication: PNEUMONIA PSEUDOMONAL
     Dosage: 3 PILLS BID ORAL
     Route: 048
     Dates: start: 20140524, end: 20140604

REACTIONS (1)
  - Inappropriate antidiuretic hormone secretion [None]
